FAERS Safety Report 13274814 (Version 3)
Quarter: 2018Q1

REPORT INFORMATION
  Report Type: Spontaneous
  Country: JP (occurrence: JP)
  Receive Date: 20170227
  Receipt Date: 20180316
  Transmission Date: 20180508
  Serious: Yes (Hospitalization, Other)
  Sender: FDA-Public Use
  Company Number: JP-ELI_LILLY_AND_COMPANY-JP201702008178

PATIENT
  Age: 25 Year
  Sex: Male
  Weight: 94 kg

DRUGS (7)
  1. FLUNITRAZEPAM [Concomitant]
     Active Substance: FLUNITRAZEPAM
     Dosage: 200 MG, EACH EVENING
     Route: 048
  2. WYPAX [Concomitant]
     Active Substance: LORAZEPAM
     Dosage: 0.5 MG, EACH EVENING
     Route: 048
  3. CYMBALTA [Suspect]
     Active Substance: DULOXETINE HYDROCHLORIDE
     Indication: PRODUCT USED FOR UNKNOWN INDICATION
     Dosage: 60 MG, EACH EVENING
     Route: 048
  4. LIMAS [Concomitant]
     Active Substance: LITHIUM CARBONATE
     Dosage: 400 MG, TID
     Route: 048
  5. FAMOTIDINE. [Concomitant]
     Active Substance: FAMOTIDINE
  6. QUETIAPINE                         /01270902/ [Concomitant]
     Active Substance: QUETIAPINE FUMARATE
     Dosage: 600 MG, EACH EVENING
     Route: 048
  7. TOFRANIL [Concomitant]
     Active Substance: IMIPRAMINE HYDROCHLORIDE
     Dosage: 120 MG, DAILY
     Route: 048

REACTIONS (7)
  - Suicide attempt [Unknown]
  - Pneumonia aspiration [Unknown]
  - Disseminated intravascular coagulation [Recovering/Resolving]
  - Septic shock [Unknown]
  - Loss of consciousness [Recovering/Resolving]
  - Intensive care unit acquired weakness [Not Recovered/Not Resolved]
  - Neuroleptic malignant syndrome [Recovering/Resolving]
